FAERS Safety Report 11254507 (Version 2)
Quarter: 2015Q3

REPORT INFORMATION
  Report Type: Spontaneous
  Country: US (occurrence: US)
  Receive Date: 20150709
  Receipt Date: 20150730
  Transmission Date: 20151125
  Serious: No
  Sender: FDA-Public Use
  Company Number: US-PFIZER INC-2015225971

PATIENT
  Age: 52 Year
  Sex: Male

DRUGS (2)
  1. VIAGRA [Suspect]
     Active Substance: SILDENAFIL CITRATE
     Dosage: TOOK 2 100 MG TABLETS
     Route: 048
  2. VIAGRA [Suspect]
     Active Substance: SILDENAFIL CITRATE
     Indication: ERECTILE DYSFUNCTION
     Dosage: 100 MG, DAILY (TAKE 1 TABLET DAILY 1 HOUR BEFORE NEEDED)
     Route: 048

REACTIONS (5)
  - Feeling hot [Unknown]
  - Erythema [Unknown]
  - Incorrect dose administered [Unknown]
  - Flushing [Unknown]
  - Drug ineffective [Unknown]
